FAERS Safety Report 5363627-9 (Version None)
Quarter: 2007Q2

REPORT INFORMATION
  Report Type: 
  Country: None (occurrence: None)
  Receive Date: 20070620
  Receipt Date: 20070604
  Transmission Date: 20071010
  Serious: Yes (Other)
  Sender: FDA-Public Use
  Company Number: US-GILEAD-2007-0010984

PATIENT
  Sex: Female
  Weight: 3 kg

DRUGS (10)
  1. TENOFOVIR DISOPROXIL FUMARATE [Suspect]
     Route: 048
     Dates: start: 20061227, end: 20061227
  2. TENOFOVIR DISOPROXIL FUMARATE [Suspect]
     Route: 064
     Dates: start: 20061227, end: 20061227
  3. ZIDOVUDINE [Concomitant]
     Dates: start: 20061227
  4. AMPICILLIN [Concomitant]
     Dates: start: 20061227
  5. GENTAMICIN [Concomitant]
     Dates: start: 20061227
  6. LAMIVUDINE + ZIDOVUDINE [Concomitant]
     Route: 064
  7. NELFINAVIR [Concomitant]
     Route: 064
  8. ALBUTEROL [Concomitant]
     Route: 064
  9. FERROUS SULFATE [Concomitant]
     Route: 064
  10. PRENATAL VITAMINS [Concomitant]
     Route: 064

REACTIONS (2)
  - HAEMOGLOBIN DECREASED [None]
  - NEONATAL RESPIRATORY DISTRESS SYNDROME [None]
